FAERS Safety Report 4888768-1 (Version None)
Quarter: 2006Q1

REPORT INFORMATION
  Report Type: 
  Country: None (occurrence: None)
  Receive Date: 20060123
  Receipt Date: 20051005
  Transmission Date: 20060701
  Serious: Yes (Death, Hospitalization, Other)
  Sender: FDA-Public Use
  Company Number: US-MERCK-0510USA03374

PATIENT
  Age: 41 Year
  Sex: Female
  Weight: 108 kg

DRUGS (32)
  1. VIOXX [Suspect]
     Indication: MUSCLE RELAXANT THERAPY
     Route: 048
  2. VIOXX [Suspect]
     Indication: ANALGESIC EFFECT
     Route: 048
  3. HYDROCODONE HYDROCHLORIDE [Concomitant]
     Route: 065
  4. FERROUS SULFATE [Concomitant]
     Route: 065
  5. SEROQUEL [Concomitant]
     Route: 065
  6. CHLORAL HYDRATE [Concomitant]
     Route: 065
  7. DURAGESIC-100 [Concomitant]
     Route: 065
  8. GLUCOPHAGE [Concomitant]
     Route: 065
  9. CARISOPRODOL [Concomitant]
     Route: 065
  10. PRILOSEC [Concomitant]
     Route: 065
  11. AMBIEN [Concomitant]
     Route: 065
  12. THEO-24 [Concomitant]
     Route: 065
  13. PAXIL [Concomitant]
     Route: 065
  14. DILTIAZEM HYDROCHLORIDE [Concomitant]
     Route: 065
  15. AVANDIA [Concomitant]
     Route: 065
  16. RISPERDAL [Concomitant]
     Route: 065
  17. NEURONTIN [Concomitant]
     Route: 065
  18. ALPRAZOLAM [Concomitant]
     Route: 065
  19. CYCLOBENZAPRINE HYDROCHLORIDE [Concomitant]
     Route: 065
  20. PREDNISONE [Concomitant]
     Route: 065
  21. SUCRALFATE [Concomitant]
     Route: 065
  22. SULFAMETHOXAZOLE AND TRIMETHOPRIM [Concomitant]
     Route: 065
  23. ARTHROTEC [Concomitant]
     Route: 065
  24. AMITRIPTYLINE HYDROCHLORIDE [Concomitant]
     Route: 065
  25. METFORMIN HYDROCHLORIDE [Concomitant]
     Route: 065
  26. TRAZODONE HYDROCHLORIDE [Concomitant]
     Route: 065
  27. BELLADONNA AND PHENOBARBITAL [Concomitant]
     Route: 065
  28. CLINDAMYCIN [Concomitant]
     Route: 065
  29. PHENAZOPYRIDINE HYDROCHLORIDE [Concomitant]
     Route: 065
  30. CIPRO [Concomitant]
     Route: 065
  31. FUROSEMIDE [Concomitant]
     Route: 065
  32. MICRO-K [Concomitant]
     Route: 065

REACTIONS (9)
  - CHEST PAIN [None]
  - CHRONIC OBSTRUCTIVE PULMONARY DISEASE [None]
  - CORONARY ARTERY DISEASE [None]
  - GASTROOESOPHAGEAL REFLUX DISEASE [None]
  - HYPERTENSIVE HEART DISEASE [None]
  - MYOCARDIAL INFARCTION [None]
  - OBESITY [None]
  - PLEURITIC PAIN [None]
  - SLEEP APNOEA SYNDROME [None]
